FAERS Safety Report 12949874 (Version 1)
Quarter: 2016Q4

REPORT INFORMATION
  Report Type: Spontaneous
  Country: IT (occurrence: IT)
  Receive Date: 20161116
  Receipt Date: 20161116
  Transmission Date: 20170207
  Serious: Yes (Hospitalization)
  Sender: FDA-Public Use
  Company Number: IT-G+W LABS-GW2016IT000181

PATIENT

DRUGS (5)
  1. AMINOPHYLLINE. [Suspect]
     Active Substance: AMINOPHYLLINE
     Indication: PRODUCT USED FOR UNKNOWN INDICATION
     Dosage: UNK
     Route: 065
  2. DRONEDARONE [Concomitant]
     Active Substance: DRONEDARONE
     Indication: ATRIAL FIBRILLATION
  3. DIPYRIDAMOLE. [Suspect]
     Active Substance: DIPYRIDAMOLE
     Dosage: 0.28 MG/KG
  4. DIPYRIDAMOLE. [Suspect]
     Active Substance: DIPYRIDAMOLE
     Indication: STRESS ECHOCARDIOGRAM
     Dosage: 0.56 MG/KG
     Route: 042
  5. ATROPINE. [Suspect]
     Active Substance: ATROPINE
     Indication: STRESS ECHOCARDIOGRAM
     Dosage: 1 MG (IN 0.25 MG  FOUR DOSES)
     Route: 042

REACTIONS (2)
  - Electrocardiogram ST segment depression [Recovered/Resolved]
  - Electrocardiogram T wave inversion [Recovered/Resolved]
